FAERS Safety Report 19239699 (Version 3)
Quarter: 2021Q3

REPORT INFORMATION
  Report Type: Spontaneous
  Country: US (occurrence: US)
  Receive Date: 20210510
  Receipt Date: 20210913
  Transmission Date: 20211014
  Serious: Yes (Death, Other)
  Sender: FDA-Public Use
  Company Number: NVSC2020US349710

PATIENT
  Sex: Male
  Weight: 61 kg

DRUGS (3)
  1. LUTATHERA [Suspect]
     Active Substance: LUTETIUM OXODOTREOTIDE LU-177
     Indication: PANCREATIC NEUROENDOCRINE TUMOUR METASTATIC
     Dosage: UNK
     Route: 042
     Dates: start: 20190816
  2. LUTATHERA [Suspect]
     Active Substance: LUTETIUM OXODOTREOTIDE LU-177
     Dosage: UNK
     Route: 042
     Dates: start: 20191011
  3. LUTATHERA [Suspect]
     Active Substance: LUTETIUM OXODOTREOTIDE LU-177
     Dosage: RECEIVED 3 INJECTION DOSES
     Route: 065

REACTIONS (3)
  - Malignant neoplasm progression [Fatal]
  - Hepatic enzyme abnormal [Unknown]
  - Pancreatic neuroendocrine tumour metastatic [Fatal]
